FAERS Safety Report 4983346-8 (Version None)
Quarter: 2006Q2

REPORT INFORMATION
  Report Type: 
  Country: None (occurrence: None)
  Receive Date: 20060426
  Receipt Date: 20051028
  Transmission Date: 20061013
  Serious: Yes (Death, Other)
  Sender: FDA-Public Use
  Company Number: US-MERCK-0510USA09949

PATIENT
  Age: 67 Year
  Sex: Male
  Weight: 107 kg

DRUGS (10)
  1. VIOXX [Suspect]
     Indication: OSTEOARTHRITIS
     Route: 048
     Dates: start: 20010701, end: 20020409
  2. VIOXX [Suspect]
     Indication: MONARTHRITIS
     Route: 048
     Dates: start: 20010701, end: 20020409
  3. LIPITOR [Concomitant]
     Indication: BLOOD CHOLESTEROL
     Route: 065
     Dates: start: 19940101, end: 20020409
  4. CARTIA XT [Concomitant]
     Route: 065
  5. ASPIRIN [Concomitant]
     Route: 065
     Dates: start: 19940101, end: 20020409
  6. DOXAZOSIN MESYLATE [Concomitant]
     Route: 065
  7. PREVACID [Concomitant]
     Route: 065
  8. CIPROFLOXACIN HCL [Concomitant]
     Route: 065
  9. LASIX [Concomitant]
     Indication: FLUID RETENTION
     Route: 065
     Dates: start: 19990301, end: 19990701
  10. CHONDROITIN SULFATE SODIUM AND GLUCOSAMINE SULFATE [Concomitant]
     Route: 065
     Dates: start: 19970101, end: 20020409

REACTIONS (5)
  - ARRHYTHMIA [None]
  - CARDIAC ARREST [None]
  - HYPERTENSION [None]
  - MYOCARDIAL INFARCTION [None]
  - PROSTATE CANCER [None]
